FAERS Safety Report 6807404-8 (Version None)
Quarter: 2010Q2

REPORT INFORMATION
  Report Type: 
  Country: None (occurrence: None)
  Receive Date: 20100625
  Receipt Date: 20100618
  Transmission Date: 20101027
  Serious: Yes (Death)
  Sender: FDA-Public Use
  Company Number: DSA_43327_2010

PATIENT
  Sex: Female

DRUGS (3)
  1. XENAZINE [Suspect]
     Indication: TARDIVE DYSKINESIA
     Dosage: 12.5 MG TID ORAL
     Route: 048
     Dates: start: 20100302
  2. BLOOD PRESSURE MEDICINE [Concomitant]
  3. ANTI-PARKINSON DRUGS [Concomitant]

REACTIONS (1)
  - DEATH [None]
